FAERS Safety Report 21273469 (Version 1)
Quarter: 2022Q3

REPORT INFORMATION
  Report Type: Spontaneous
  Country: CA (occurrence: None)
  Receive Date: 20220831
  Receipt Date: 20220831
  Transmission Date: 20221027
  Serious: Yes (Life-Threatening, Hospitalization, Disabling)
  Sender: FDA-Public Use
  Company Number: CA-ROCHE-3168628

PATIENT
  Age: 59 Year
  Sex: Female
  Weight: 63 kg

DRUGS (8)
  1. ACTEMRA [Suspect]
     Active Substance: TOCILIZUMAB
     Indication: Respiratory failure
     Route: 042
  2. DEXAMETHASONE SODIUM PHOSPHATE [Suspect]
     Active Substance: DEXAMETHASONE SODIUM PHOSPHATE
     Indication: Respiratory failure
     Route: 042
  3. DEXAMETHASONE SODIUM PHOSPHATE [Suspect]
     Active Substance: DEXAMETHASONE SODIUM PHOSPHATE
     Route: 042
  4. ASPIRIN [Concomitant]
     Active Substance: ASPIRIN
     Route: 065
  5. FLOVENT [Concomitant]
     Active Substance: FLUTICASONE PROPIONATE
  6. LIPITOR [Concomitant]
     Active Substance: ATORVASTATIN CALCIUM
     Route: 065
  7. VENLAFAXINE HYDROCHLORIDE [Concomitant]
     Active Substance: VENLAFAXINE HYDROCHLORIDE
  8. VENTOLIN [Concomitant]
     Active Substance: ALBUTEROL SULFATE

REACTIONS (11)
  - Aspergillus infection [Recovering/Resolving]
  - Bronchopulmonary aspergillosis [Recovering/Resolving]
  - Disease progression [Recovering/Resolving]
  - Empyema [Recovering/Resolving]
  - Fungal infection [Recovering/Resolving]
  - Increased bronchial secretion [Recovering/Resolving]
  - Pneumonia bacterial [Recovering/Resolving]
  - Pulmonary embolism [Recovering/Resolving]
  - Pyrexia [Recovering/Resolving]
  - Septic embolus [Recovering/Resolving]
  - Superinfection bacterial [Recovering/Resolving]
